FAERS Safety Report 4974937-9 (Version None)
Quarter: 2006Q2

REPORT INFORMATION
  Report Type: 
  Country: None (occurrence: None)
  Receive Date: 20060418
  Receipt Date: 20060413
  Transmission Date: 20061013
  Serious: Yes (Life-Threatening, Hospitalization)
  Sender: FDA-Public Use
  Company Number: 2006UW06483

PATIENT
  Age: 41 Year
  Sex: Female

DRUGS (8)
  1. SEROQUEL [Suspect]
     Indication: BIPOLAR DISORDER
     Route: 048
     Dates: end: 20060303
  2. SEROQUEL [Suspect]
     Route: 048
     Dates: start: 20060314, end: 20060319
  3. TOPAMAX [Suspect]
     Route: 048
     Dates: end: 20060303
  4. TOPAMAX [Suspect]
     Route: 048
     Dates: start: 20060314
  5. WELLBUTRIN [Suspect]
     Route: 048
     Dates: end: 20060303
  6. WELLBUTRIN [Suspect]
     Route: 048
     Dates: start: 20060314
  7. LEVAQUIN [Suspect]
     Route: 042
     Dates: start: 20060306, end: 20060308
  8. LEVAQUIN [Suspect]
     Route: 048
     Dates: start: 20060308, end: 20060319

REACTIONS (2)
  - MULTIPLE DRUG OVERDOSE [None]
  - VENTRICULAR TACHYCARDIA [None]
